FAERS Safety Report 5702174-9 (Version None)
Quarter: 2008Q2

REPORT INFORMATION
  Report Type: 
  Country: None (occurrence: None)
  Receive Date: 20080411
  Receipt Date: 20080331
  Transmission Date: 20081010
  Serious: Yes (Death)
  Sender: FDA-Public Use
  Company Number: CA-ROCHE-545311

PATIENT
  Sex: Male

DRUGS (6)
  1. FUZEON [Suspect]
     Dosage: FORM VIAL. STOP DATE: 2008.
     Route: 058
  2. NITROGLYCERIN [Concomitant]
     Dosage: TAKEN EVERY NIGHT
  3. TMC [Concomitant]
     Dosage: EXPERIMENTAL PROTEASE INHIBITOR BEING DEVELOPED BY TIBOTEC
     Route: 048
  4. DARUNAVIR [Concomitant]
     Route: 048
  5. RITONAVIR [Concomitant]
     Route: 048
  6. RALTEGRAVIR [Concomitant]
     Route: 048

REACTIONS (7)
  - COMA [None]
  - DIZZINESS [None]
  - FALL [None]
  - HEPATIC FAILURE [None]
  - HEPATOSPLENOMEGALY [None]
  - LOSS OF CONSCIOUSNESS [None]
  - ROTATOR CUFF SYNDROME [None]
